FAERS Safety Report 5381649-9 (Version None)
Quarter: 2007Q2

REPORT INFORMATION
  Report Type: 
  Country: None (occurrence: None)
  Receive Date: 20070629
  Receipt Date: 20060728
  Transmission Date: 20071010
  Serious: Yes (Other)
  Sender: FDA-Public Use
  Company Number: 2006093164

PATIENT
  Age: 50 Year
  Sex: Male

DRUGS (4)
  1. ZOLOFT [Suspect]
     Indication: DEPRESSION
     Dates: start: 20060310, end: 20060313
  2. PAROXETINE [Suspect]
     Indication: DEPRESSION
     Dosage: 20 MG (20 MG, 1 IN 1 D), ORAL
     Route: 048
     Dates: start: 20060602, end: 20060605
  3. CLONAZEPAM [Concomitant]
  4. AMBIEN (ZOLOIDEM TARTRATE) [Concomitant]

REACTIONS (3)
  - NAUSEA [None]
  - PENIS DISORDER [None]
  - PRIAPISM [None]
